FAERS Safety Report 13734634 (Version 3)
Quarter: 2017Q4

REPORT INFORMATION
  Report Type: Report from Study
  Country: TR (occurrence: TR)
  Receive Date: 20170709
  Receipt Date: 20171101
  Transmission Date: 20180320
  Serious: Yes (Other)
  Sender: FDA-Public Use
  Company Number: TR-ROCHE-1960135

PATIENT
  Age: 67 Year
  Sex: Female

DRUGS (1)
  1. ALTEPLASE. [Suspect]
     Active Substance: ALTEPLASE
     Indication: RETINAL HAEMORRHAGE
     Route: 050

REACTIONS (1)
  - Retinal haemorrhage [Unknown]
